FAERS Safety Report 6609126-5 (Version None)
Quarter: 2010Q1

REPORT INFORMATION
  Report Type: 
  Country: None (occurrence: None)
  Receive Date: 20100226
  Receipt Date: 20100226
  Transmission Date: 20100710
  Serious: Yes (Life-Threatening, Hospitalization, Disabling)
  Sender: FDA-Public Use
  Company Number: None

PATIENT
  Sex: Female
  Weight: 41 kg

DRUGS (2)
  1. TARCEVA [Suspect]
     Indication: NON-SMALL CELL LUNG CANCER
     Dosage: 15- MG DAILY DAYS 1 TO 28 PO
     Route: 048
     Dates: start: 20090727, end: 20100207
  2. 5-AZACYTIDINE [Suspect]
     Indication: NON-SMALL CELL LUNG CANCER
     Dosage: 110 MG DAY 1-4, 15-18 SQ
     Route: 058
     Dates: start: 20090727, end: 20100204

REACTIONS (10)
  - APHASIA [None]
  - ATRIAL FIBRILLATION [None]
  - DEEP VEIN THROMBOSIS [None]
  - DYSARTHRIA [None]
  - FALL [None]
  - HAEMOPTYSIS [None]
  - PULMONARY EMBOLISM [None]
  - RESPIRATORY FAILURE [None]
  - SPEECH DISORDER [None]
  - TRANSIENT ISCHAEMIC ATTACK [None]
